FAERS Safety Report 16894251 (Version 1)
Quarter: 2019Q4

REPORT INFORMATION
  Report Type: Spontaneous
  Country: US (occurrence: US)
  Receive Date: 20191008
  Receipt Date: 20191008
  Transmission Date: 20200122
  Serious: No
  Sender: FDA-Public Use
  Company Number: US-INDIVIOR US-INDV-117710-2019

PATIENT
  Age: 68 Year
  Sex: Female

DRUGS (8)
  1. SUBOXONE [Suspect]
     Active Substance: BUPRENORPHINE HYDROCHLORIDE\NALOXONE HYDROCHLORIDE
     Dosage: 0.5MG AND 0.25 MG, MORE THAN ONCE A DAY
     Route: 060
     Dates: start: 201901, end: 201901
  2. SUBOXONE [Suspect]
     Active Substance: BUPRENORPHINE HYDROCHLORIDE\NALOXONE HYDROCHLORIDE
     Indication: PRODUCT USED FOR UNKNOWN INDICATION
     Dosage: UNKNOWN
     Route: 065
  3. METHADONE [Suspect]
     Active Substance: METHADONE HYDROCHLORIDE
     Indication: PRODUCT USED FOR UNKNOWN INDICATION
     Dosage: UNKNOWN
     Route: 065
  4. SUBOXONE [Suspect]
     Active Substance: BUPRENORPHINE HYDROCHLORIDE\NALOXONE HYDROCHLORIDE
     Dosage: 0.25MG, UNKNOWN
     Route: 060
     Dates: start: 20190129, end: 20190129
  5. SUBOXONE [Suspect]
     Active Substance: BUPRENORPHINE HYDROCHLORIDE\NALOXONE HYDROCHLORIDE
     Dosage: UNKNOWN
     Route: 065
     Dates: start: 2015
  6. SUBOXONE [Suspect]
     Active Substance: BUPRENORPHINE HYDROCHLORIDE\NALOXONE HYDROCHLORIDE
     Indication: PRODUCT USED FOR UNKNOWN INDICATION
     Dosage: 4MG, UNKNOWN
     Route: 060
     Dates: start: 20190124, end: 20190129
  7. SUBOXONE [Suspect]
     Active Substance: BUPRENORPHINE HYDROCHLORIDE\NALOXONE HYDROCHLORIDE
     Dosage: 1.75 MG, (TOOK AN 8TH, 16TH, 16TH AND ANOTHER 16TH FROM 1:30 AM TO 6:45 PM)
     Route: 060
     Dates: start: 201901, end: 201901
  8. SUBOXONE [Suspect]
     Active Substance: BUPRENORPHINE HYDROCHLORIDE\NALOXONE HYDROCHLORIDE
     Dosage: UNK, (0.5MG IN THE MORNING, 0.5MG IN THE EVENING)
     Route: 060
     Dates: start: 201901, end: 201901

REACTIONS (22)
  - Intentional underdose [Recovered/Resolved]
  - Hypometabolism [Unknown]
  - Inappropriate schedule of product administration [Recovered/Resolved]
  - Hyperhidrosis [Recovered/Resolved]
  - Tremor [Unknown]
  - Dizziness [Unknown]
  - Heart rate increased [Recovered/Resolved]
  - Headache [Unknown]
  - Malaise [Recovered/Resolved]
  - Loss of personal independence in daily activities [Unknown]
  - Yawning [Unknown]
  - Insomnia [Recovered/Resolved]
  - Vomiting [Unknown]
  - Drug withdrawal syndrome [Not Recovered/Not Resolved]
  - Wrong technique in product usage process [Recovered/Resolved]
  - Hot flush [Unknown]
  - Asthenia [Unknown]
  - Hypertension [Unknown]
  - Off label use [Recovered/Resolved]
  - Balance disorder [Unknown]
  - Nausea [Unknown]
  - Feeling abnormal [Unknown]

NARRATIVE: CASE EVENT DATE: 20190124
